FAERS Safety Report 20379150 (Version 1)
Quarter: 2022Q1

REPORT INFORMATION
  Report Type: Spontaneous
  Country: US (occurrence: US)
  Receive Date: 20220126
  Receipt Date: 20220126
  Transmission Date: 20220423
  Serious: No
  Sender: FDA-Public Use
  Company Number: US-CELGENE-USA-20220105699

PATIENT
  Age: 42 Year
  Sex: Female

DRUGS (3)
  1. THALOMID [Suspect]
     Active Substance: THALIDOMIDE
     Indication: Crohn^s disease
     Dosage: 100 MILLIGRAM
     Route: 048
     Dates: start: 202105
  2. THALOMID [Suspect]
     Active Substance: THALIDOMIDE
     Indication: Off label use
     Dosage: 100 MILLIGRAM
     Route: 048
     Dates: start: 202111, end: 20220109
  3. THALOMID [Suspect]
     Active Substance: THALIDOMIDE
     Route: 048
     Dates: start: 20220116

REACTIONS (1)
  - COVID-19 [Unknown]

NARRATIVE: CASE EVENT DATE: 20220109
